FAERS Safety Report 5612477-4 (Version None)
Quarter: 2008Q1

REPORT INFORMATION
  Report Type: 
  Country: None (occurrence: None)
  Receive Date: 20080201
  Receipt Date: 20080201
  Transmission Date: 20080703
  Serious: Yes (Hospitalization)
  Sender: FDA-Public Use
  Company Number: None

PATIENT
  Age: 66 Year
  Sex: Male
  Weight: 156 kg

DRUGS (15)
  1. KETOCONAZOLE [Suspect]
     Indication: PROSTATE CANCER
     Dosage: 400MG TID PO
     Route: 048
     Dates: start: 20071116, end: 20080104
  2. LENALIDOMIDE 25MG [Suspect]
     Indication: PROSTATE CANCER
     Dosage: 25MG DAILY PO
     Route: 048
     Dates: start: 20071116, end: 20080103
  3. OXYCODONE HCL-OXYCONTIN [Concomitant]
  4. COUMADIN [Concomitant]
  5. OXYCODONE HCL/ACETAMINOPHEN-PERCOCET [Concomitant]
  6. PROCHLORPERAZINE MALEATE [Concomitant]
  7. HYDROCORTISONE -CORTEF- [Concomitant]
  8. CAPTOPRIL [Concomitant]
  9. DILTIAZEM [Concomitant]
  10. METOPROLOL SUCCINATE EXTENDED RELEASE [Concomitant]
  11. LYRICA [Concomitant]
  12. ZOLOFT [Concomitant]
  13. GLYBURIDE [Concomitant]
  14. SOLIFENACIN SUCCINATE -VESICARE- [Concomitant]
  15. LEUPROLIDE -LUPRON DEPOT- [Concomitant]

REACTIONS (7)
  - ASTHENIA [None]
  - CARDIAC FAILURE CONGESTIVE [None]
  - DIZZINESS [None]
  - NAUSEA [None]
  - PNEUMONIA [None]
  - PULMONARY EMBOLISM [None]
  - VOMITING [None]
